FAERS Safety Report 5694903-8 (Version None)
Quarter: 2008Q2

REPORT INFORMATION
  Report Type: 
  Country: None (occurrence: None)
  Receive Date: 20080404
  Receipt Date: 20080403
  Transmission Date: 20081010
  Serious: Yes (Hospitalization)
  Sender: FDA-Public Use
  Company Number: US-KINGPHARMUSA00001-K200800389

PATIENT

DRUGS (5)
  1. ALTACE [Suspect]
     Dosage: 2.5 MG, QD
  2. METOPROLOL SUCCINATE [Suspect]
     Dosage: 50 MG, QD
  3. TRAMADOL HCL [Suspect]
     Dosage: 200 MG, QD
  4. ATORVASTATIN [Concomitant]
     Dosage: 80 MG, UNK
  5. OMEPRAZOLE [Concomitant]
     Dosage: 40 MG, UNK
     Route: 048

REACTIONS (3)
  - ANGIOEDEMA [None]
  - GOUT [None]
  - RASH [None]
